FAERS Safety Report 23251073 (Version 2)
Quarter: 2023Q4

REPORT INFORMATION
  Report Type: Spontaneous
  Country: US (occurrence: US)
  Receive Date: 20231201
  Receipt Date: 20231212
  Transmission Date: 20240110
  Serious: No
  Sender: FDA-Public Use
  Company Number: US-ELI_LILLY_AND_COMPANY-US202311016507

PATIENT
  Sex: Female
  Weight: 69.841 kg

DRUGS (2)
  1. MOUNJARO [Suspect]
     Active Substance: TIRZEPATIDE
     Indication: Glucose tolerance impaired
     Dosage: 10 MG, UNKNOWN
     Route: 065
     Dates: start: 202305
  2. MOUNJARO [Suspect]
     Active Substance: TIRZEPATIDE
     Indication: Glucose tolerance impaired
     Dosage: 10 MG, UNKNOWN
     Route: 065
     Dates: start: 202305

REACTIONS (8)
  - Dermal absorption impaired [Unknown]
  - Weight decreased [Not Recovered/Not Resolved]
  - Anorexia nervosa [Unknown]
  - Vomiting projectile [Unknown]
  - Nausea [Unknown]
  - Vomiting [Unknown]
  - Impaired gastric emptying [Recovered/Resolved]
  - Off label use [Unknown]
